FAERS Safety Report 24062287 (Version 1)
Quarter: 2024Q3

REPORT INFORMATION
  Report Type: Spontaneous
  Country: US (occurrence: None)
  Receive Date: 20240708
  Receipt Date: 20240708
  Transmission Date: 20241017
  Serious: Yes (Other)
  Sender: Public
  Company Number: None

PATIENT
  Age: 58 Year
  Sex: Female
  Weight: 123.83 kg

DRUGS (3)
  1. SEMGLEE (INSULIN GLARGINE-YFGN) [Suspect]
     Active Substance: INSULIN GLARGINE-YFGN
     Indication: Diabetes mellitus
     Dosage: 80 U BID SQ
     Route: 058
     Dates: start: 20240526, end: 20240529
  2. LEVEMIR [Suspect]
     Active Substance: INSULIN DETEMIR
     Dosage: 65 U IN AM,  90 U IN PM?
     Dates: start: 201706
  3. TOUJEO [Suspect]
     Active Substance: INSULIN GLARGINE
     Indication: Diabetes mellitus
     Dosage: 160 U DAILY
     Dates: start: 2017

REACTIONS (4)
  - Skin irritation [None]
  - Dysuria [None]
  - Blood glucose increased [None]
  - Nonspecific reaction [None]

NARRATIVE: CASE EVENT DATE: 20240520
